FAERS Safety Report 9278874 (Version 4)
Quarter: 2014Q2

REPORT INFORMATION
  Report Type: Spontaneous
  Country: BR (occurrence: None)
  Receive Date: 20130501
  Receipt Date: 20140610
  Transmission Date: 20141212
  Serious: Yes (Hospitalization)
  Sender: FDA-Public Use
  Company Number: AUR-APL-2013-03481

PATIENT
  Age: 40 Year
  Sex: Female
  Weight: 67 kg

DRUGS (11)
  1. ATENOLOL [Suspect]
     Indication: HYPERTENSION
     Dosage: 1/2 TABLET DAILY, ORAL
     Route: 048
     Dates: start: 2010, end: 201302
  2. ATENOLOL [Suspect]
     Indication: TACHYCARDIA
     Dosage: 1/2 TABLET DAILY, ORAL
     Route: 048
     Dates: start: 2010, end: 201302
  3. RANITIDINE [Suspect]
     Indication: DYSPEPSIA
     Dates: start: 1993, end: 2013
  4. OMEPRAZOLE [Suspect]
     Indication: DYSPEPSIA
     Dosage: AS REQUIRED
     Route: 048
     Dates: start: 1993, end: 201404
  5. SELOZOK [Suspect]
     Indication: TACHYCARDIA
     Route: 048
     Dates: start: 20130418
  6. ALLOPURINOL [Concomitant]
  7. HYDREA (HYDROXYCARBAMIDE) [Concomitant]
  8. ERGOCALCIFEROL (ERGOCALCIFEROL) [Concomitant]
  9. ALENDRONATE SODIUM (ALENDRONATE SODIUM) (ALENDRONATE SODIUM) [Concomitant]
  10. PANTOPRAZOLE (PANTOPRAZOLE) [Suspect]
     Indication: PRODUCT USED FOR UNKNOWN INDICATION
     Dates: start: 201404, end: 201404
  11. ESOMEPRAZOLE (ESOMEPRAZOLE) [Concomitant]

REACTIONS (21)
  - Weight increased [None]
  - Insomnia [None]
  - Alopecia [None]
  - Fatigue [None]
  - Heart rate decreased [None]
  - Haemoglobin decreased [None]
  - Feeling abnormal [None]
  - Gastric disorder [None]
  - Condition aggravated [None]
  - Off label use [None]
  - Blood pressure increased [None]
  - Headache [None]
  - Hypoaesthesia [None]
  - Somnolence [None]
  - Disturbance in attention [None]
  - Irritability [None]
  - Visual impairment [None]
  - Wrong technique in drug usage process [None]
  - Rhinitis [None]
  - Urticaria [None]
  - Therapy cessation [None]
